FAERS Safety Report 15065950 (Version 3)
Quarter: 2018Q3

REPORT INFORMATION
  Report Type: Spontaneous
  Country: US (occurrence: US)
  Receive Date: 20180626
  Receipt Date: 20180713
  Transmission Date: 20181010
  Serious: Yes (Hospitalization)
  Sender: FDA-Public Use
  Company Number: US-SUNOVION-2018SUN002528

PATIENT
  Sex: Male

DRUGS (4)
  1. BROVANA [Concomitant]
     Active Substance: ARFORMOTEROL TARTRATE
  2. BUDESONIDE. [Concomitant]
     Active Substance: BUDESONIDE
  3. PROAIR HFA [Concomitant]
     Active Substance: ALBUTEROL SULFATE
  4. LONHALA MAGNAIR [Suspect]
     Active Substance: GLYCOPYRROLATE
     Indication: PRODUCT USED FOR UNKNOWN INDICATION
     Dosage: 25MCG/1ML
     Route: 055
     Dates: start: 2018

REACTIONS (9)
  - Stress [Unknown]
  - Cardiac disorder [Unknown]
  - Muscle strain [Unknown]
  - Eye disorder [Unknown]
  - Road traffic accident [Unknown]
  - Lung disorder [Unknown]
  - Tooth disorder [Unknown]
  - Fatigue [Unknown]
  - Cough [Unknown]
